FAERS Safety Report 16731756 (Version 1)
Quarter: 2019Q3

REPORT INFORMATION
  Report Type: Report from Study
  Country: MY (occurrence: MY)
  Receive Date: 20190822
  Receipt Date: 20190822
  Transmission Date: 20191005
  Serious: Yes (Hospitalization)
  Sender: FDA-Public Use
  Company Number: PHHY2019MY140386

PATIENT
  Age: 43 Year
  Sex: Male

DRUGS (3)
  1. VOTRIENT [Suspect]
     Active Substance: PAZOPANIB HYDROCHLORIDE
     Dosage: 200 MG, QD (DAILY) (AFTER ONE YEAR OF START)
     Route: 048
  2. VOTRIENT [Suspect]
     Active Substance: PAZOPANIB HYDROCHLORIDE
     Dosage: 400 MG, DAILY
     Route: 048
  3. VOTRIENT [Suspect]
     Active Substance: PAZOPANIB HYDROCHLORIDE
     Indication: RENAL CELL CARCINOMA
     Dosage: 400 MG, QD (DAILY)
     Route: 048
     Dates: start: 201303

REACTIONS (16)
  - Muscular weakness [Unknown]
  - Anger [Unknown]
  - Decreased appetite [Unknown]
  - Gait disturbance [Unknown]
  - Frustration tolerance decreased [Unknown]
  - Skin discolouration [Unknown]
  - Fatigue [Unknown]
  - Peripheral coldness [Unknown]
  - Arthralgia [Unknown]
  - Hair colour changes [Unknown]
  - Abdominal pain [Unknown]
  - Amnesia [Unknown]
  - Emotional distress [Unknown]
  - Hypertension [Unknown]
  - Headache [Unknown]
  - Depression [Unknown]

NARRATIVE: CASE EVENT DATE: 201303
